FAERS Safety Report 22206669 (Version 2)
Quarter: 2023Q2

REPORT INFORMATION
  Report Type: Report from Study
  Country: US (occurrence: US)
  Receive Date: 20230413
  Receipt Date: 20230605
  Transmission Date: 20230722
  Serious: No
  Sender: FDA-Public Use
  Company Number: US-002147023-NVSC2023US085283

PATIENT
  Age: 67 Year
  Sex: Female

DRUGS (1)
  1. ILARIS [Suspect]
     Active Substance: CANAKINUMAB
     Indication: Pyrexia
     Dosage: 150 MG, Q4W
     Route: 058
     Dates: start: 20230412

REACTIONS (6)
  - Wrong technique in product usage process [Recovered/Resolved]
  - Incorrect dose administered by device [Recovered/Resolved]
  - Peripheral coldness [Unknown]
  - Fatigue [Unknown]
  - Headache [Unknown]
  - Infection [Unknown]

NARRATIVE: CASE EVENT DATE: 20230412
